FAERS Safety Report 9798756 (Version 1)
Quarter: 2014Q1

REPORT INFORMATION
  Report Type: Spontaneous
  Country: US (occurrence: US)
  Receive Date: 20140106
  Receipt Date: 20140106
  Transmission Date: 20141002
  Serious: No
  Sender: FDA-Public Use
  Company Number: US-GILEAD-2010-0030107

PATIENT
  Age: 52 Year
  Sex: Female
  Weight: 113.4 kg

DRUGS (13)
  1. LETAIRIS [Suspect]
     Indication: PULMONARY ARTERIAL HYPERTENSION
     Route: 048
     Dates: start: 20091118
  2. LASIX [Concomitant]
  3. ASPIRIN [Concomitant]
  4. PLAVIX [Concomitant]
  5. ATENOLOL [Concomitant]
  6. KLONOPIN [Concomitant]
  7. DILTIAZEM [Concomitant]
  8. CRESTOR [Concomitant]
  9. ALBUTEROL [Concomitant]
  10. SPIRIVA [Concomitant]
  11. ZOLOFT [Concomitant]
  12. HYDROCODONE [Concomitant]
  13. POTASSIUM CHLORIDE [Concomitant]

REACTIONS (1)
  - Myalgia [Unknown]
